FAERS Safety Report 9661159 (Version 1)
Quarter: 2013Q4

REPORT INFORMATION
  Report Type: Spontaneous
  Country: US (occurrence: US)
  Receive Date: 20131031
  Receipt Date: 20131031
  Transmission Date: 20140711
  Serious: No
  Sender: FDA-Public Use
  Company Number: US-009507513-1310USA015262

PATIENT
  Age: 14 Year
  Sex: Male
  Weight: 49.89 kg

DRUGS (2)
  1. CLARITIN [Suspect]
     Indication: DERMATITIS CONTACT
     Dosage: 10 MG, QD
     Route: 048
     Dates: start: 20131019
  2. CLARITIN [Suspect]
     Dosage: 10 MG, BID
     Route: 048
     Dates: start: 20131020

REACTIONS (3)
  - Off label use [Unknown]
  - Accidental overdose [Unknown]
  - Inappropriate schedule of drug administration [Unknown]
